FAERS Safety Report 26042897 (Version 1)
Quarter: 2025Q4

REPORT INFORMATION
  Report Type: Spontaneous
  Country: EU (occurrence: EU)
  Receive Date: 20251113
  Receipt Date: 20251113
  Transmission Date: 20260117
  Serious: Yes (Other)
  Sender: VERTEX
  Company Number: EU-EMB-M202407040-1

PATIENT
  Sex: Female

DRUGS (9)
  1. ELEXACAFTOR\IVACAFTOR\TEZACAFTOR [Suspect]
     Active Substance: ELEXACAFTOR\IVACAFTOR\TEZACAFTOR
     Indication: Cystic fibrosis
     Dosage: TOTAL OF ALL ACTIVE INGREDIENTS 450 MG/D
     Route: 064
     Dates: start: 202312, end: 202409
  2. IPRATROPIUM [Suspect]
     Active Substance: IPRATROPIUM
     Indication: Cystic fibrosis
     Dosage: 250 MICROGRAM
     Route: 064
     Dates: start: 202312, end: 202409
  3. SERTRALINE [Suspect]
     Active Substance: SERTRALINE HYDROCHLORIDE
     Indication: Depression
     Dosage: 200 MILLIGRAM, QD
     Route: 064
     Dates: start: 202312, end: 202409
  4. FLUTIFORM [Suspect]
     Active Substance: FLUTIFORM
     Indication: Cystic fibrosis
     Dosage: 5 ?G (DOSAGE 125/5 ?G/D)
     Route: 064
     Dates: start: 202312, end: 202409
  5. SPIRIVA [Suspect]
     Active Substance: TIOTROPIUM BROMIDE MONOHYDRATE
     Indication: Cystic fibrosis
     Dosage: 1-2 UNITS PER DAY/CORRESPONDS TO 2.5-5 ?G/D
     Route: 064
     Dates: start: 202312, end: 202409
  6. PANTOPRAZOLE SODIUM [Suspect]
     Active Substance: PANTOPRAZOLE SODIUM
     Indication: Gastritis prophylaxis
     Dosage: AS NEEDED THROUGHOUT PREGNANCY
     Route: 064
     Dates: start: 202312, end: 202409
  7. FEXOFENADINE HYDROCHLORIDE [Suspect]
     Active Substance: FEXOFENADINE HYDROCHLORIDE
     Indication: Seasonal allergy
     Dosage: AS NEEDED THROUGHOUT PREGNANCY
     Route: 064
     Dates: start: 202312, end: 202409
  8. Mucoclear [Concomitant]
     Indication: Cystic fibrosis
     Route: 064
     Dates: start: 202312, end: 202409
  9. FOLIC ACID [Concomitant]
     Active Substance: FOLIC ACID
     Indication: Vitamin supplementation
     Dosage: 1/DAY
     Route: 048
     Dates: start: 202312, end: 202409

REACTIONS (2)
  - Small for dates baby [Unknown]
  - Microcephaly [Unknown]

NARRATIVE: CASE EVENT DATE: 20240901
